FAERS Safety Report 21265704 (Version 2)
Quarter: 2022Q3

REPORT INFORMATION
  Report Type: Spontaneous
  Country: CN (occurrence: CN)
  Receive Date: 20220829
  Receipt Date: 20220906
  Transmission Date: 20221027
  Serious: Yes (Other)
  Sender: FDA-Public Use
  Company Number: CN-UCBSA-2022049298

PATIENT
  Age: 36 Year
  Sex: Male
  Weight: 70 kg

DRUGS (2)
  1. KEPPRA [Suspect]
     Active Substance: LEVETIRACETAM
     Indication: Brain operation
     Dosage: 0.75 GRAM, 2X/DAY (BID)
     Route: 048
     Dates: start: 20190826
  2. KEPPRA [Suspect]
     Active Substance: LEVETIRACETAM
     Dosage: 0.75 GRAM, 2X/DAY (BID)

REACTIONS (6)
  - Syncope [Not Recovered/Not Resolved]
  - Gastrointestinal injury [Not Recovered/Not Resolved]
  - Lethargy [Recovering/Resolving]
  - Fatigue [Recovering/Resolving]
  - Therapy cessation [Unknown]
  - Product use in unapproved indication [Unknown]

NARRATIVE: CASE EVENT DATE: 20190826
